FAERS Safety Report 23506625 (Version 3)
Quarter: 2025Q2

REPORT INFORMATION
  Report Type: Spontaneous
  Country: DE (occurrence: US)
  Receive Date: 20240209
  Receipt Date: 20250403
  Transmission Date: 20250716
  Serious: No
  Sender: CHIESI
  Company Number: DE-AMRYT PHARMACEUTICALS DAC-AEGR006900

PATIENT
  Sex: Female

DRUGS (1)
  1. METRELEPTIN [Suspect]
     Active Substance: METRELEPTIN
     Indication: Congenital generalised lipodystrophy

REACTIONS (1)
  - Maternal exposure during pregnancy [Unknown]
